FAERS Safety Report 8726357 (Version 4)
Quarter: 2012Q4

REPORT INFORMATION
  Report Type: 
  Country: IE (occurrence: IE)
  Receive Date: 20120816
  Receipt Date: 20120921
  Transmission Date: 20130627
  Serious: Yes (Hospitalization)
  Sender: FDA-Public Use
  Company Number: PHFR2012IE004481

PATIENT
  Age: 35 Year
  Sex: Female

DRUGS (1)
  1. CLOZARIL [Suspect]
     Indication: SCHIZOPHRENIA
     Dosage: 375 mg, UNK
     Route: 048
     Dates: start: 20020912

REACTIONS (8)
  - Cholelithiasis [Recovered/Resolved]
  - Pancreatitis [Recovering/Resolving]
  - Jaundice [Recovering/Resolving]
  - Neutrophil count increased [Unknown]
  - Liver function test abnormal [Recovering/Resolving]
  - Nausea [Recovered/Resolved]
  - Vomiting [Recovered/Resolved]
  - White blood cell count decreased [Recovered/Resolved]
